FAERS Safety Report 10238114 (Version 2)
Quarter: 2014Q2

REPORT INFORMATION
  Report Type: Report from Study
  Country: AU (occurrence: AU)
  Receive Date: 20140616
  Receipt Date: 20140616
  Transmission Date: 20141212
  Serious: Yes (Hospitalization)
  Sender: FDA-Public Use
  Company Number: PHHY2014AU008417

PATIENT
  Age: 39 Year
  Sex: Female

DRUGS (5)
  1. CLOZARIL [Suspect]
     Indication: SCHIZOPHRENIA
     Dosage: 100 MG
     Route: 048
     Dates: start: 19960422
  2. CLOZARIL [Suspect]
     Dosage: 300 MG, PER DAY
     Route: 048
     Dates: end: 201312
  3. CLOZARIL [Suspect]
     Dosage: UNK (100 MG TO UPTO 300 MG)
     Route: 048
     Dates: start: 20140106, end: 20140113
  4. CLOZARIL [Suspect]
     Dosage: 300 MG, PER DAY
     Route: 048
     Dates: start: 20140120
  5. CLOZARIL [Suspect]
     Dosage: 100 MG
     Route: 048

REACTIONS (4)
  - Schizophrenia [Unknown]
  - Decreased activity [Recovering/Resolving]
  - Mental impairment [Recovering/Resolving]
  - Antipsychotic drug level below therapeutic [Recovering/Resolving]
